FAERS Safety Report 6924291-8 (Version None)
Quarter: 2010Q3

REPORT INFORMATION
  Report Type: 
  Country: None (occurrence: None)
  Receive Date: 20100813
  Receipt Date: 20100806
  Transmission Date: 20110219
  Serious: Yes (Other)
  Sender: FDA-Public Use
  Company Number: US-AMGEN-KDC429650

PATIENT
  Sex: Male

DRUGS (10)
  1. DENOSUMAB [Suspect]
     Indication: METASTASES TO BONE
     Dates: start: 20100312
  2. DEXAMETHASONE [Concomitant]
     Route: 048
     Dates: start: 20100503
  3. LISINOPRIL [Concomitant]
     Route: 048
     Dates: start: 20100410
  4. MORPHINE [Concomitant]
     Route: 048
     Dates: start: 20100503
  5. CALCIUM [Concomitant]
     Route: 048
     Dates: start: 20070201
  6. VITAMIN D [Concomitant]
     Route: 048
     Dates: start: 20070201
  7. GLUCOSAMINE [Concomitant]
     Route: 048
     Dates: start: 20040101
  8. IBUPROFEN [Concomitant]
     Route: 048
     Dates: start: 20010101
  9. PEPCID [Concomitant]
     Route: 048
     Dates: start: 20040101
  10. FISH OIL [Concomitant]
     Route: 048
     Dates: start: 20060101

REACTIONS (1)
  - OSTEONECROSIS OF JAW [None]
